FAERS Safety Report 8898079 (Version 1)
Quarter: 2012Q4

REPORT INFORMATION
  Report Type: 
  Country: US (occurrence: US)
  Receive Date: 20121108
  Receipt Date: 20121108
  Transmission Date: 20130627
  Serious: No
  Sender: FDA-Public Use
  Company Number: US-AMGEN-USASP2012030650

PATIENT
  Sex: Female
  Weight: 74 kg

DRUGS (8)
  1. ENBREL [Suspect]
     Dosage: 50 mg, qwk
     Route: 058
  2. ENBREL [Suspect]
  3. CRESTOR [Concomitant]
     Dosage: 10 mg, UNK
  4. BABY ASPIRIN [Concomitant]
     Dosage: 81 mg, UNK
  5. CALCIUM [Concomitant]
  6. MULTIVITAMIN                       /00097801/ [Concomitant]
  7. TRAMADOL HCL [Concomitant]
     Dosage: 50 mg, UNK
  8. VITAMIN E                          /00110501/ [Concomitant]
     Dosage: 400 IU, UNK

REACTIONS (2)
  - Therapeutic response decreased [Unknown]
  - Condition aggravated [Unknown]
